FAERS Safety Report 17004399 (Version 1)
Quarter: 2019Q4

REPORT INFORMATION
  Report Type: Spontaneous
  Country: ES (occurrence: ES)
  Receive Date: 20191107
  Receipt Date: 20191107
  Transmission Date: 20200122
  Serious: Yes (Other)
  Sender: FDA-Public Use
  Company Number: ES-PFIZER INC-2019477414

PATIENT
  Age: 47 Year
  Sex: Male
  Weight: 67 kg

DRUGS (11)
  1. ENTRESTO [Suspect]
     Active Substance: SACUBITRIL\VALSARTAN
     Indication: FATIGUE
     Dosage: 1 DF, UNK (HALF TABLET EVERY 12 HOURS)
     Route: 048
     Dates: start: 20190304
  2. SAMSCA [Suspect]
     Active Substance: TOLVAPTAN
     Indication: FATIGUE
     Dosage: 30 MG, 1X/DAY (ONE TABLET EVERY DAY)
     Route: 065
     Dates: start: 20180427
  3. ZEMPLAR [Concomitant]
     Active Substance: PARICALCITOL
     Indication: HYPERPARATHYROIDISM SECONDARY
     Dosage: 1 UG, ALTERNATE DAY (1 CAPSULE EVERY 2 DAYS)
     Route: 065
     Dates: start: 20190415
  4. EPLERENONA [Concomitant]
     Active Substance: EPLERENONE
     Indication: CARDIAC VALVE DISEASE
     Dosage: 50 MG, 1X/DAY (1 TABLET EVERY DAY)
     Route: 048
     Dates: start: 20190304
  5. REVATIO [Suspect]
     Active Substance: SILDENAFIL CITRATE
     Indication: PULMONARY FIBROSIS
     Dosage: 20 MG, 3X/DAY (1 TABLET EVERY 8 HOURS)
     Route: 065
     Dates: start: 20170327
  6. TOLVAPTAN [Concomitant]
     Active Substance: TOLVAPTAN
     Indication: FATIGUE
     Dosage: 15 MG, 1X/DAY (ONE TABLET EVERY DAY)
     Route: 065
     Dates: start: 20190308
  7. HIGROTONA [Concomitant]
     Active Substance: CHLORTHALIDONE
     Indication: CARDIAC VALVE DISEASE
     Dosage: 50 MG, 1X/DAY (HALF TABLET EACH DAY)
     Route: 065
     Dates: start: 20190304
  8. BISOPROLOL [Concomitant]
     Active Substance: BISOPROLOL
     Indication: ATRIAL SEPTAL DEFECT
     Dosage: 2.5 MG, 1X/DAY (1 TABLET EVERY DAY)
     Route: 065
     Dates: start: 20180829
  9. SEGURIL [Concomitant]
     Active Substance: FUROSEMIDE
     Indication: CARDIAC VALVE DISEASE
     Dosage: 40 MG, 1X/DAY (1 TABLET EVERY DAY)
     Route: 065
     Dates: start: 20180327
  10. AMIODARONA [AMIODARONE] [Concomitant]
     Active Substance: AMIODARONE
     Indication: ATRIAL SEPTAL DEFECT
     Dosage: 5 DF, UNK (5 TABLET EVERY 7 DAYS)
     Route: 065
     Dates: start: 20170704
  11. PROCORALAN [Concomitant]
     Active Substance: IVABRADINE
     Indication: CARDIAC VALVE DISEASE
     Dosage: 10 MG, 1X/DAY (HALF TABLET EVERY 12 HOURS)
     Route: 065
     Dates: start: 20180223

REACTIONS (2)
  - Presyncope [Recovered/Resolved]
  - Loss of consciousness [Recovered/Resolved]

NARRATIVE: CASE EVENT DATE: 20190803
